FAERS Safety Report 6530134-7 (Version None)
Quarter: 2010Q1

REPORT INFORMATION
  Report Type: 
  Country: None (occurrence: None)
  Receive Date: 20100107
  Receipt Date: 20100105
  Transmission Date: 20100710
  Serious: Yes (Death)
  Sender: FDA-Public Use
  Company Number: US-ASTRAZENECA-2010SE00283

PATIENT
  Age: 28 Year
  Sex: Male

DRUGS (5)
  1. SEROQUEL [Suspect]
     Route: 048
  2. DEPAKOTE [Concomitant]
  3. LUVOX [Concomitant]
  4. TRILEPTAL [Concomitant]
  5. BETASERONE [Concomitant]

REACTIONS (1)
  - COMPLETED SUICIDE [None]
